FAERS Safety Report 25222172 (Version 1)
Quarter: 2025Q2

REPORT INFORMATION
  Report Type: Spontaneous
  Country: US (occurrence: US)
  Receive Date: 20250421
  Receipt Date: 20250421
  Transmission Date: 20250717
  Serious: Yes (Other)
  Sender: PFIZER
  Company Number: US-PFIZER INC-PV202500046990

PATIENT
  Age: 60 Year
  Sex: Female

DRUGS (1)
  1. NURTEC ODT [Suspect]
     Active Substance: RIMEGEPANT SULFATE
     Indication: Migraine
     Dosage: PLACE 1 TABLET ON OR UNDER THE TONGUE EVERY OTHER DAY
     Route: 048

REACTIONS (1)
  - Facial paralysis [Unknown]

NARRATIVE: CASE EVENT DATE: 20250401
